FAERS Safety Report 8334138-3 (Version None)
Quarter: 2012Q2

REPORT INFORMATION
  Report Type: 
  Country: None (occurrence: None)
  Receive Date: 20120503
  Receipt Date: 20110301
  Transmission Date: 20120825
  Serious: No
  Sender: FDA-Public Use
  Company Number: US-TEVA-2011000985

PATIENT
  Age: 21 Year
  Sex: Male

DRUGS (4)
  1. NUVIGIL [Suspect]
     Dosage: 50 MILLIGRAM;
     Route: 048
  2. MELOXICAM [Concomitant]
  3. NUVIGIL [Suspect]
     Indication: NARCOLEPSY
     Dosage: 250 MILLIGRAM;
     Route: 048
  4. TRAMADOL HCL [Concomitant]

REACTIONS (1)
  - RASH [None]
